FAERS Safety Report 8611461-6 (Version None)
Quarter: 2012Q3

REPORT INFORMATION
  Report Type: 
  Country: None (occurrence: None)
  Receive Date: 20120822
  Receipt Date: 20120816
  Transmission Date: 20120928
  Serious: Yes (Hospitalization, Other)
  Sender: FDA-Public Use
  Company Number: DZ-ABBOTT-12P-003-0963751-00

PATIENT
  Sex: Male
  Weight: 55 kg

DRUGS (5)
  1. HUMIRA [Suspect]
  2. INDOMETHACIN [Concomitant]
     Indication: PAIN
     Route: 048
     Dates: start: 20120601
  3. OMEPRAZOLE [Concomitant]
     Indication: PROPHYLAXIS
  4. HUMIRA [Suspect]
     Indication: ANKYLOSING SPONDYLITIS
     Route: 058
     Dates: start: 20120413, end: 20120723
  5. OMEPRAZOLE [Concomitant]
     Indication: GASTROINTESTINAL DISORDER
     Route: 048
     Dates: start: 20120601

REACTIONS (3)
  - ASCITES [None]
  - PLEURAL EFFUSION [None]
  - TUBERCULOSIS [None]
